FAERS Safety Report 9815219 (Version 1)
Quarter: 2014Q1

REPORT INFORMATION
  Report Type: Report from Study
  Country: US (occurrence: US)
  Receive Date: 20140114
  Receipt Date: 20140114
  Transmission Date: 20141002
  Serious: Yes (Other)
  Sender: FDA-Public Use
  Company Number: US-ROCHE-1329889

PATIENT
  Sex: Female

DRUGS (3)
  1. LUCENTIS [Suspect]
     Indication: RETINAL VEIN OCCLUSION
     Route: 065
     Dates: start: 201310
  2. AVASTIN [Suspect]
     Indication: RETINAL VEIN OCCLUSION
     Route: 065
     Dates: start: 201101, end: 201311
  3. LOSARTAN [Concomitant]
     Indication: HYPERTENSION
     Route: 048

REACTIONS (10)
  - Eye irritation [Recovered/Resolved]
  - Blindness [Recovered/Resolved]
  - Ocular hyperaemia [Recovered/Resolved]
  - Visual impairment [Recovered/Resolved]
  - Eye pain [Recovered/Resolved]
  - Lacrimation increased [Recovered/Resolved]
  - Eye disorder [Recovered/Resolved]
  - Eye swelling [Recovered/Resolved]
  - Headache [Recovered/Resolved]
  - Nausea [Recovered/Resolved]
